FAERS Safety Report 5144377-0 (Version None)
Quarter: 2006Q4

REPORT INFORMATION
  Report Type: 
  Country: None (occurrence: None)
  Receive Date: 20061030
  Receipt Date: 20061023
  Transmission Date: 20070319
  Serious: Yes (Death, Hospitalization)
  Sender: FDA-Public Use
  Company Number: S06-USA-02769-01

PATIENT
  Age: 35 Year
  Sex: Female

DRUGS (1)
  1. LEXAPRO [Suspect]
     Indication: DEPRESSION
     Dosage: 30 MG QD PO
     Route: 048

REACTIONS (3)
  - COMPLETED SUICIDE [None]
  - OVERDOSE [None]
  - SUICIDAL IDEATION [None]
